FAERS Safety Report 24811682 (Version 1)
Quarter: 2025Q1

REPORT INFORMATION
  Report Type: Spontaneous
  Country: US (occurrence: None)
  Receive Date: 20250105
  Receipt Date: 20250105
  Transmission Date: 20250409
  Serious: Yes (Life-Threatening, Hospitalization, Disabling, Other)
  Sender: FDA-CTU
  Company Number: None

PATIENT
  Age: 11 Year
  Sex: Female
  Weight: 63.5 kg

DRUGS (3)
  1. LAMICTAL [Suspect]
     Active Substance: LAMOTRIGINE
  2. UNSPECIFIED INGREDIENT [Concomitant]
     Active Substance: UNSPECIFIED INGREDIENT
  3. GERD [Concomitant]

REACTIONS (3)
  - Borderline personality disorder [None]
  - Mood swings [None]
  - Stevens-Johnson syndrome [None]

NARRATIVE: CASE EVENT DATE: 20250105
